FAERS Safety Report 17374163 (Version 1)
Quarter: 2020Q1

REPORT INFORMATION
  Report Type: Spontaneous
  Country: US (occurrence: US)
  Receive Date: 20200204
  Receipt Date: 20200204
  Transmission Date: 20200409
  Serious: Yes (Other)
  Sender: FDA-Public Use
  Company Number: None

PATIENT

DRUGS (1)
  1. VANCOMYCIN INJECTION [Suspect]
     Active Substance: VANCOMYCIN
     Indication: INFECTION
     Route: 041

REACTIONS (6)
  - Circumstance or information capable of leading to medication error [None]
  - Contraindicated product administered [None]
  - Product outer packaging issue [None]
  - Product use complaint [None]
  - Toxicity to various agents [None]
  - Maternal drugs affecting foetus [None]

NARRATIVE: CASE EVENT DATE: 20200122
